FAERS Safety Report 21747936 (Version 1)
Quarter: 2022Q4

REPORT INFORMATION
  Report Type: Spontaneous
  Country: US (occurrence: None)
  Receive Date: 20221216
  Receipt Date: 20221216
  Transmission Date: 20230113
  Serious: Yes (Other)
  Sender: FDA-Public Use
  Company Number: None

PATIENT
  Age: 68 Year
  Sex: Female
  Weight: 56.25 kg

DRUGS (3)
  1. OTEZLA [Suspect]
     Active Substance: APREMILAST
     Indication: Psoriasis
     Route: 048
  2. Lumigan eye drops for high ocular pressure. [Concomitant]
  3. Centrum multi-vitamen [Concomitant]

REACTIONS (5)
  - Rash [None]
  - Hyperkeratosis [None]
  - Therapy cessation [None]
  - Squamous cell carcinoma [None]
  - Skin graft [None]

NARRATIVE: CASE EVENT DATE: 20220623
